FAERS Safety Report 25642902 (Version 3)
Quarter: 2025Q3

REPORT INFORMATION
  Report Type: Spontaneous
  Country: US (occurrence: US)
  Receive Date: 20250805
  Receipt Date: 20250913
  Transmission Date: 20251020
  Serious: Yes (Hospitalization, Other)
  Sender: AUROBINDO
  Company Number: US-MLMSERVICE-20250717-PI582265-00271-1

PATIENT
  Age: 82 Year
  Sex: Female

DRUGS (5)
  1. PREDNISONE [Suspect]
     Active Substance: PREDNISONE
     Indication: Ulcerative keratitis
     Dosage: 30 MILLIGRAM, ONCE A DAY
     Route: 048
  2. METHOTREXATE [Suspect]
     Active Substance: METHOTREXATE
     Indication: Ulcerative keratitis
     Dosage: 10 MILLIGRAM, EVERY WEEK (INITIATED AS A STEROID-SPARING THERAPY)
     Route: 048
  3. METHOTREXATE [Suspect]
     Active Substance: METHOTREXATE
     Dosage: 12.5 MILLIGRAM, EVERY WEEK (INCREASED TO 12.5 MG WEEKLY)
     Route: 048
  4. FOLIC ACID [Concomitant]
     Active Substance: FOLIC ACID
     Indication: Product used for unknown indication
     Dosage: 1 MILLIGRAM, ONCE A DAY
     Route: 065
  5. VALACYCLOVIR [Concomitant]
     Active Substance: VALACYCLOVIR HYDROCHLORIDE
     Indication: Ulcerative keratitis
     Dosage: 1 GRAM, ONCE A DAY
     Route: 065

REACTIONS (4)
  - Pneumonia [Unknown]
  - Substance-induced psychotic disorder [Unknown]
  - Fall [Unknown]
  - Ulcerative keratitis [Recovered/Resolved]
